FAERS Safety Report 15476605 (Version 1)
Quarter: 2018Q4

REPORT INFORMATION
  Report Type: Spontaneous
  Country: US (occurrence: US)
  Receive Date: 20181009
  Receipt Date: 20181009
  Transmission Date: 20190205
  Serious: Yes (Hospitalization)
  Sender: FDA-Public Use
  Company Number: US-BIOGEN-2018BI00640645

PATIENT
  Age: 56 Year
  Sex: Female

DRUGS (1)
  1. TECFIDERA [Suspect]
     Active Substance: DIMETHYL FUMARATE
     Indication: MULTIPLE SCLEROSIS
     Route: 048
     Dates: start: 20150311

REACTIONS (4)
  - Nephrolithiasis [Recovered/Resolved]
  - Road traffic accident [Recovered/Resolved]
  - Thrombosis [Not Recovered/Not Resolved]
  - Gastrooesophageal reflux disease [Recovered/Resolved]

NARRATIVE: CASE EVENT DATE: 20180618
